FAERS Safety Report 9558349 (Version 1)
Quarter: 2013Q3

REPORT INFORMATION
  Report Type: Spontaneous
  Country: US (occurrence: US)
  Receive Date: 20130926
  Receipt Date: 20130926
  Transmission Date: 20140515
  Serious: Yes (Hospitalization, Other)
  Sender: FDA-Public Use
  Company Number: US-ABBVIE-13P-163-1149825-00

PATIENT
  Age: 61 Year
  Sex: Male
  Weight: 86.71 kg

DRUGS (1)
  1. ANDROGEL [Suspect]
     Indication: BLOOD TESTOSTERONE DECREASED
     Route: 061
     Dates: start: 201111, end: 201211

REACTIONS (2)
  - Hepatic cirrhosis [Recovered/Resolved]
  - Liver disorder [Recovered/Resolved]
